FAERS Safety Report 18435885 (Version 1)
Quarter: 2020Q4

REPORT INFORMATION
  Report Type: Spontaneous
  Country: US (occurrence: US)
  Receive Date: 20201028
  Receipt Date: 20201028
  Transmission Date: 20210114
  Serious: Yes (Hospitalization)
  Sender: FDA-Public Use
  Company Number: None

PATIENT
  Sex: Female

DRUGS (15)
  1. MULTIVITAMIN, [Concomitant]
  2. RISEDRONATE, [Concomitant]
  3. SIMVASTATIN, [Concomitant]
  4. XARELTO, [Concomitant]
  5. INLYTA [Suspect]
     Active Substance: AXITINIB
     Indication: RENAL CANCER
     Route: 048
     Dates: start: 202006
  6. TIMOLOL MAL, [Concomitant]
  7. LINZESS, [Concomitant]
  8. ZOLPIDEM [Suspect]
     Active Substance: ZOLPIDEM TARTRATE
  9. HYDROCO/APAP, [Concomitant]
  10. HYDROCHLOROT, [Concomitant]
  11. PROCHLORPER, [Concomitant]
  12. DOCUSATE SODIUM, [Concomitant]
  13. FLECAINIDE, [Concomitant]
  14. GABAPENTIN, [Concomitant]
  15. ONDANSETRON, [Concomitant]

REACTIONS (3)
  - Fatigue [None]
  - Dyspnoea [None]
  - Therapy cessation [None]
